FAERS Safety Report 7797471-X (Version None)
Quarter: 2011Q4

REPORT INFORMATION
  Report Type: 
  Country: None (occurrence: None)
  Receive Date: 20111003
  Receipt Date: 20110916
  Transmission Date: 20120403
  Serious: Yes (Hospitalization)
  Sender: FDA-Public Use
  Company Number: GER/UKI/11/0021211

PATIENT
  Age: 10 Month
  Sex: Male

DRUGS (2)
  1. CETIRIZINE HCL [Suspect]
     Indication: DIFFUSE CUTANEOUS MASTOCYTOSIS
  2. KETOTIFEN (KETOTIFEN) [Suspect]
     Indication: DIFFUSE CUTANEOUS MASTOCYTOSIS

REACTIONS (5)
  - FLUSHING [None]
  - OEDEMA PERIPHERAL [None]
  - FACE OEDEMA [None]
  - BLISTER [None]
  - DIARRHOEA [None]
